FAERS Safety Report 9908644 (Version 1)
Quarter: 2014Q1

REPORT INFORMATION
  Report Type: Spontaneous
  Country: US (occurrence: None)
  Receive Date: 20140212
  Receipt Date: 20140212
  Transmission Date: 20141002
  Serious: Yes (Other)
  Sender: FDA-Public Use
  Company Number: None

PATIENT
  Age: 78 Year
  Sex: Female

DRUGS (1)
  1. SUTENT 25MG PFIZER [Suspect]
     Dosage: 14 DAYS AND 7 DAYS OFF
     Route: 048
     Dates: start: 201401

REACTIONS (2)
  - Blood pressure increased [None]
  - Haemoptysis [None]
